FAERS Safety Report 6200389-7 (Version None)
Quarter: 2009Q2

REPORT INFORMATION
  Report Type: 
  Country: None (occurrence: None)
  Receive Date: 20090522
  Receipt Date: 20090515
  Transmission Date: 20091009
  Serious: Yes (Hospitalization)
  Sender: FDA-Public Use
  Company Number: JP-ABBOTT-09P-087-0565985-00

PATIENT
  Age: 76 Year
  Sex: Male

DRUGS (16)
  1. LEUPLIN SR FOR INJECTION 11.25 MG [Suspect]
     Indication: PROSTATE CANCER STAGE III
     Route: 058
     Dates: start: 20060119
  2. BASEN [Concomitant]
     Indication: DIABETES MELLITUS
     Route: 048
  3. CASODEX [Concomitant]
     Indication: PROSTATE CANCER STAGE III
     Route: 048
     Dates: start: 20051107
  4. AMLODIPINE [Concomitant]
     Indication: HYPERTENSION
     Route: 048
  5. GASMET [Concomitant]
     Indication: GASTRIC ULCER
     Route: 048
  6. WARFARIN SODIUM [Concomitant]
     Indication: ANGINA PECTORIS
     Route: 048
     Dates: end: 20061206
  7. WARFARIN SODIUM [Concomitant]
     Route: 048
  8. MAGNESIUM OXIDE [Concomitant]
     Indication: CONSTIPATION
     Route: 048
  9. HARNAL [Concomitant]
     Indication: BENIGN PROSTATIC HYPERPLASIA
     Route: 048
  10. LIPITOR [Concomitant]
     Indication: HYPERLIPIDAEMIA
     Route: 048
     Dates: start: 20060803, end: 20061019
  11. AMARYL [Concomitant]
     Indication: DIABETES MELLITUS
     Route: 048
     Dates: start: 20070301
  12. NITROPEN [Concomitant]
     Indication: ANGINA PECTORIS
     Route: 060
     Dates: start: 20070614
  13. ITOROL [Concomitant]
     Indication: ANGINA PECTORIS
     Route: 048
     Dates: start: 20070618
  14. PLAVIX [Concomitant]
     Indication: ANGINA PECTORIS
     Route: 048
     Dates: start: 20070813
  15. FRANDOL [Concomitant]
     Indication: ANGINA PECTORIS
     Route: 062
     Dates: start: 20070618
  16. SELBEX [Concomitant]
     Indication: GASTRITIS
     Route: 048
     Dates: start: 20070615, end: 20070730

REACTIONS (1)
  - CHEST PAIN [None]
